FAERS Safety Report 8031185-6 (Version None)
Quarter: 2012Q1

REPORT INFORMATION
  Report Type: 
  Country: None (occurrence: None)
  Receive Date: 20120109
  Receipt Date: 20120103
  Transmission Date: 20120608
  Serious: Yes (Hospitalization)
  Sender: FDA-Public Use
  Company Number: FR-BAYER-2012-001184

PATIENT
  Age: 34 Year
  Sex: Female

DRUGS (17)
  1. VANCOMYCIN [Suspect]
     Indication: PNEUMONIA PNEUMOCOCCAL
     Dosage: UNK
     Route: 042
     Dates: start: 20110205, end: 20110211
  2. PYOSTACINE [Suspect]
     Indication: PNEUMONIA PNEUMOCOCCAL
     Dosage: 1 G, TID
     Route: 042
     Dates: start: 20110203, end: 20110205
  3. FLAGYL [Suspect]
     Indication: PNEUMONIA PNEUMOCOCCAL
     Dosage: 500 MG, TID
     Dates: start: 20110211
  4. CLAFORAN [Suspect]
     Indication: LUNG DISORDER
  5. ROCEPHIN [Suspect]
     Indication: PNEUMONIA PNEUMOCOCCAL
     Dosage: 2 G, QD
     Route: 042
     Dates: start: 20110201, end: 20110211
  6. ROCEPHIN [Suspect]
     Indication: LUNG DISORDER
  7. FLAGYL [Suspect]
     Indication: LUNG DISORDER
  8. VANCOMYCIN [Suspect]
     Indication: LUNG DISORDER
  9. CIPROFLOXACIN [Suspect]
     Indication: PNEUMONIA PNEUMOCOCCAL
     Dosage: 200 MG, BID
     Route: 042
     Dates: start: 20110203, end: 20110205
  10. CIPROFLOXACIN [Suspect]
     Indication: LUNG DISORDER
  11. CLINDAMYCIN HCL [Suspect]
     Indication: PNEUMONIA PNEUMOCOCCAL
     Dosage: 1200 MG, BID
     Route: 042
     Dates: start: 20110205, end: 20110211
  12. ZYVOX [Suspect]
     Indication: PNEUMONIA PNEUMOCOCCAL
     Dosage: 600 MG, BID
     Dates: start: 20110211
  13. ZYVOX [Suspect]
     Indication: LUNG DISORDER
  14. CLINDAMYCIN HCL [Suspect]
     Indication: LUNG DISORDER
  15. PYOSTACINE [Suspect]
     Indication: LUNG DISORDER
  16. CLAFORAN [Suspect]
     Indication: PNEUMONIA PNEUMOCOCCAL
     Dosage: 1.5 G, QID
     Dates: start: 20110211
  17. HYDROCORTISONE SODIUM SUCCINATE [Concomitant]
     Dosage: UNK
     Route: 042
     Dates: start: 20110203

REACTIONS (4)
  - DRUG RASH WITH EOSINOPHILIA AND SYSTEMIC SYMPTOMS [None]
  - ACUTE RESPIRATORY DISTRESS SYNDROME [None]
  - PANCREATITIS ACUTE [None]
  - SEPTIC SHOCK [None]
